FAERS Safety Report 6175420-8 (Version None)
Quarter: 2009Q2

REPORT INFORMATION
  Report Type: 
  Country: None (occurrence: None)
  Receive Date: 20090429
  Receipt Date: 20090421
  Transmission Date: 20091009
  Serious: Yes (Hospitalization)
  Sender: FDA-Public Use
  Company Number: 2009EN000139

PATIENT
  Age: 5 Month
  Sex: Female
  Weight: 6.78 kg

DRUGS (9)
  1. ONCASPAR [Suspect]
     Indication: ACUTE LYMPHOCYTIC LEUKAEMIA
     Dosage: 850 IU
     Dates: end: 20080816
  2. LESTAURTINIB [Suspect]
     Indication: ACUTE LYMPHOCYTIC LEUKAEMIA
     Dosage: PO
     Route: 048
     Dates: start: 20080609, end: 20080709
  3. CYCLOPHOSPHAMIDE [Suspect]
     Indication: ACUTE LYMPHOCYTIC LEUKAEMIA
     Dosage: 340 MG
     Dates: end: 20080816
  4. DAUNORUBICIN HCL [Suspect]
     Indication: ACUTE LYMPHOCYTIC LEUKAEMIA
     Dosage: 23 MG
     Dates: end: 20080814
  5. CYTARABINE [Concomitant]
  6. DEXAMETHASONE 4MG TAB [Concomitant]
  7. HYDROCORTISONE [Concomitant]
  8. METHOTREXATE [Concomitant]
  9. VINCRINSTINE [Concomitant]

REACTIONS (4)
  - BRONCHIAL HYPERREACTIVITY [None]
  - BRONCHIAL WALL THICKENING [None]
  - UPPER RESPIRATORY TRACT INFECTION [None]
  - VIRAL INFECTION [None]
